FAERS Safety Report 6275817-1 (Version None)
Quarter: 2009Q3

REPORT INFORMATION
  Report Type: 
  Country: None (occurrence: None)
  Receive Date: 20090717
  Receipt Date: 20090706
  Transmission Date: 20100115
  Serious: Yes (Other)
  Sender: FDA-Public Use
  Company Number: 2009AP002597

PATIENT
  Age: 6 Year
  Sex: Male

DRUGS (1)
  1. TOPIRAMATE [Suspect]
     Indication: PARTIAL SEIZURES
     Dosage: 3.4 MG/KG;QD

REACTIONS (6)
  - DRY SKIN [None]
  - ERYTHEMA [None]
  - FATIGUE [None]
  - HYPOHIDROSIS [None]
  - IRRITABILITY [None]
  - TEMPERATURE INTOLERANCE [None]
